FAERS Safety Report 23550801 (Version 1)
Quarter: 2024Q1

REPORT INFORMATION
  Report Type: Spontaneous
  Country: CA (occurrence: CA)
  Receive Date: 20240221
  Receipt Date: 20240221
  Transmission Date: 20240410
  Serious: Yes (Other)
  Sender: FDA-Public Use
  Company Number: CA-002147023-NVSC2024CA031744

PATIENT
  Age: 41 Year
  Sex: Female

DRUGS (2)
  1. AIMOVIG [Suspect]
     Active Substance: ERENUMAB-AOOE
     Indication: Migraine
     Dosage: UNK
     Route: 065
  2. CANDESARTAN [Concomitant]
     Active Substance: CANDESARTAN
     Indication: Product used for unknown indication

REACTIONS (14)
  - Blepharitis [Unknown]
  - Chalazion [Unknown]
  - Fatigue [Unknown]
  - Gingivitis ulcerative [Unknown]
  - Hordeolum [Unknown]
  - Illness [Unknown]
  - Influenza [Unknown]
  - Nasopharyngitis [Unknown]
  - Skin discolouration [Unknown]
  - Erythema [Unknown]
  - Rash [Unknown]
  - Oral herpes [Unknown]
  - COVID-19 [Unknown]
  - Immunosuppression [Unknown]
